FAERS Safety Report 12463966 (Version 9)
Quarter: 2018Q3

REPORT INFORMATION
  Report Type: Report from Study
  Country: None (occurrence: JP)
  Receive Date: 20160614
  Receipt Date: 20180929
  Transmission Date: 20181010
  Serious: Yes (Death, Life-Threatening, Hospitalization)
  Sender: FDA-Public Use
  Company Number: JP-ABBVIE-16P-087-1649264-00

PATIENT
  Age: 82 Year
  Sex: Female
  Weight: 35 kg

DRUGS (15)
  1. LUPRAC [Suspect]
     Active Substance: TORSEMIDE
     Indication: OEDEMA
     Route: 065
     Dates: start: 20160622, end: 20160627
  2. ZITHROMAC [Suspect]
     Active Substance: AZITHROMYCIN DIHYDRATE
     Indication: PNEUMONIA
     Route: 065
  3. VALSARTAN. [Concomitant]
     Active Substance: VALSARTAN
     Indication: HYPERTENSION
     Route: 048
     Dates: start: 20160428, end: 20160621
  4. BIFIDOBACTERIUM [Concomitant]
     Active Substance: BIFIDOBACTERIUM LONGUM
     Indication: CONSTIPATION
     Route: 048
     Dates: start: 20160606, end: 20160607
  5. BROTIZOLAM [Concomitant]
     Active Substance: BROTIZOLAM
     Route: 048
     Dates: start: 20160606
  6. AMLODIPINE BESILATE [Concomitant]
     Active Substance: AMLODIPINE BESYLATE
     Indication: HYPERTENSION
     Route: 048
     Dates: start: 20160428
  7. BROTIZOLAM [Concomitant]
     Active Substance: BROTIZOLAM
     Indication: INSOMNIA
     Route: 048
     Dates: start: 20160606, end: 20160607
  8. VIEKIRAX [Suspect]
     Active Substance: OMBITASVIR\PARITAPREVIR\RITONAVIR
     Indication: CHRONIC HEPATITIS C
     Route: 048
     Dates: start: 20160414, end: 20160606
  9. VIEKIRAX [Suspect]
     Active Substance: OMBITASVIR\PARITAPREVIR\RITONAVIR
     Route: 048
     Dates: start: 20160606, end: 20160607
  10. SPIRONOLACTONE. [Suspect]
     Active Substance: SPIRONOLACTONE
     Indication: PRODUCT USED FOR UNKNOWN INDICATION
     Route: 065
  11. LIVACT [Concomitant]
     Active Substance: AMINO ACIDS
     Indication: HEPATIC CIRRHOSIS
     Route: 048
     Dates: start: 20160428, end: 20160607
  12. SENNA LEAF/SENNA POD [Concomitant]
     Indication: CONSTIPATION
     Route: 048
     Dates: start: 20160606, end: 20160607
  13. BIFIDOBACTERIUM [Concomitant]
     Active Substance: BIFIDOBACTERIUM LONGUM
     Route: 048
     Dates: start: 20160606
  14. SENNA LEAF/SENNA POD [Concomitant]
     Route: 048
     Dates: start: 20160606
  15. ESOMEPRAZOLE MAGNESIUM. [Concomitant]
     Active Substance: ESOMEPRAZOLE MAGNESIUM
     Indication: GASTRIC ULCER
     Dates: end: 20160607

REACTIONS (18)
  - Urinary tract infection [Fatal]
  - Gait disturbance [Unknown]
  - Hyponatraemia [Recovered/Resolved]
  - Septic shock [Fatal]
  - Pneumonia [Recovered/Resolved]
  - Diarrhoea [Recovering/Resolving]
  - Femoral neck fracture [Not Recovered/Not Resolved]
  - Hypoglycaemia [Unknown]
  - Blood pressure decreased [Not Recovered/Not Resolved]
  - Fall [Unknown]
  - Full blood count decreased [Not Recovered/Not Resolved]
  - Altered state of consciousness [Unknown]
  - Nutritional condition abnormal [Unknown]
  - General physical health deterioration [Not Recovered/Not Resolved]
  - Hyperkalaemia [Recovered/Resolved]
  - Hepatic encephalopathy [Recovering/Resolving]
  - Electrolyte imbalance [Recovered/Resolved]
  - Fall [Unknown]

NARRATIVE: CASE EVENT DATE: 201605
